FAERS Safety Report 5982865-5 (Version None)
Quarter: 2008Q4

REPORT INFORMATION
  Report Type: 
  Country: None (occurrence: None)
  Receive Date: 20081208
  Receipt Date: 20080303
  Transmission Date: 20090506
  Serious: No
  Sender: FDA-Public Use
  Company Number: US-AMGEN-KDL267926

PATIENT
  Sex: Female

DRUGS (2)
  1. ENBREL [Suspect]
     Indication: PSORIATIC ARTHROPATHY
     Route: 058
     Dates: start: 20060913
  2. UNSPECIFIED ANTIHYPERTENSIVE AGENT [Concomitant]

REACTIONS (4)
  - BLOOD PRESSURE INCREASED [None]
  - LOCALISED INFECTION [None]
  - PSORIASIS [None]
  - STAPHYLOCOCCAL INFECTION [None]
